FAERS Safety Report 11265569 (Version 1)
Quarter: 2015Q3

REPORT INFORMATION
  Report Type: Spontaneous
  Country: US (occurrence: None)
  Receive Date: 20150710
  Receipt Date: 20150710
  Transmission Date: 20151125
  Serious: Yes (Other)
  Sender: FDA-Public Use
  Company Number: None

PATIENT
  Age: 64 Year
  Sex: Male
  Weight: 106.6 kg

DRUGS (5)
  1. LANTUS SOLOSTAR [Suspect]
     Active Substance: INSULIN GLARGINE
     Indication: TYPE 2 DIABETES MELLITUS
     Dosage: 20 UNITS; GIVEN INTO/UNDER THE SKIN
     Dates: start: 20150708, end: 20150709
  2. METFORMIN [Concomitant]
     Active Substance: METFORMIN HYDROCHLORIDE
  3. OSM [Concomitant]
  4. TELMISARTAN. [Concomitant]
     Active Substance: TELMISARTAN
  5. METPOROLOL SUCCER [Concomitant]

REACTIONS (1)
  - Lip swelling [None]

NARRATIVE: CASE EVENT DATE: 20150709
